FAERS Safety Report 23778407 (Version 1)
Quarter: 2024Q2

REPORT INFORMATION
  Report Type: Report from Study
  Country: BR (occurrence: BR)
  Receive Date: 20240424
  Receipt Date: 20240424
  Transmission Date: 20240716
  Serious: Yes (Death, Hospitalization)
  Sender: FDA-Public Use
  Company Number: BR-JNJFOC-20240467312

PATIENT
  Age: 73 Year
  Sex: Male
  Weight: 92.6 kg

DRUGS (21)
  1. ZYTIGA [Suspect]
     Active Substance: ABIRATERONE ACETATE
     Indication: Hormone-dependent prostate cancer
     Dosage: LAST DOSE RECEIVED: 12-SEP-2023
     Route: 048
     Dates: start: 20230502, end: 20230914
  2. PREDNISONE [Suspect]
     Active Substance: PREDNISONE
     Indication: Prostate cancer
     Dosage: DAILY, LAST DOSE RECEIVED: 12-SEP-2023
     Route: 048
     Dates: start: 20230502, end: 20230914
  3. ABEMACICLIB [Suspect]
     Active Substance: ABEMACICLIB
     Indication: Prostate cancer
     Dosage: LAST DOSE RECEIVED: 12-SEP-2023
     Route: 065
     Dates: start: 20230502, end: 20230914
  4. PURAN [Concomitant]
     Active Substance: LEVOTHYROXINE SODIUM
     Indication: Hypothyroidism
     Dates: start: 2014
  5. METFORMIN [Concomitant]
     Active Substance: METFORMIN HYDROCHLORIDE
     Dates: start: 2000
  6. LOSARTAN [Concomitant]
     Active Substance: LOSARTAN
     Indication: Hypertension
     Dates: start: 2019
  7. CIPROFIBRATE [Concomitant]
     Active Substance: CIPROFIBRATE
     Indication: Hypertriglyceridaemia
     Dates: start: 20230620
  8. EUTHYROX [Concomitant]
     Active Substance: LEVOTHYROXINE SODIUM
     Dates: start: 20230918, end: 20230924
  9. INSULIN NOS [Concomitant]
     Active Substance: INSULIN NOS
     Indication: Diabetes mellitus
     Dates: start: 20230918, end: 20230923
  10. ISOPHANE INSULIN [Concomitant]
     Active Substance: INSULIN NOS
     Indication: Diabetes mellitus
  11. SODIUM CHLORIDE [Concomitant]
     Active Substance: SODIUM CHLORIDE
  12. ISOSOURCE FIBRE 1.5 [Concomitant]
  13. DIAZEPAM [Concomitant]
     Active Substance: DIAZEPAM
  14. METHADONE [Concomitant]
     Active Substance: METHADONE HYDROCHLORIDE
  15. QUETIAPINE [Concomitant]
     Active Substance: QUETIAPINE
  16. HEPARIN [Concomitant]
     Active Substance: HEPARIN SODIUM
  17. BROMOPRIDE [Concomitant]
     Active Substance: BROMOPRIDE
  18. METOCLOPRAMIDE [Concomitant]
     Active Substance: METOCLOPRAMIDE
  19. LACTULOSE [Concomitant]
     Active Substance: LACTULOSE
  20. SIMETHICONE (DIMETHICONE) [Concomitant]
     Active Substance: DIMETHICONE
  21. DIPYRONE [Concomitant]
     Active Substance: DIPYRONE
     Indication: Prophylaxis

REACTIONS (1)
  - Pneumonia bacterial [Fatal]

NARRATIVE: CASE EVENT DATE: 20230913
